FAERS Safety Report 18569839 (Version 2)
Quarter: 2022Q4

REPORT INFORMATION
  Report Type: Report from Study
  Country: US (occurrence: US)
  Receive Date: 20201202
  Receipt Date: 20221006
  Transmission Date: 20230113
  Serious: Yes (Death, Hospitalization, Other)
  Sender: FDA-Public Use
  Company Number: US-GILEAD-2020-0506598

PATIENT
  Age: 58 Year
  Sex: Male
  Weight: 152 kg

DRUGS (1)
  1. AMBRISENTAN [Suspect]
     Active Substance: AMBRISENTAN
     Indication: Pulmonary hypertension
     Dosage: 10 MG, QD
     Route: 048
     Dates: start: 20180612, end: 20201109

REACTIONS (3)
  - Septic shock [Fatal]
  - Chronic hepatic failure [Fatal]
  - Cholecystitis infective [Recovering/Resolving]
